FAERS Safety Report 5803065-5 (Version None)
Quarter: 2008Q3

REPORT INFORMATION
  Report Type: 
  Country: None (occurrence: None)
  Receive Date: 20080703
  Receipt Date: 20080624
  Transmission Date: 20090109
  Serious: Yes (Death)
  Sender: FDA-Public Use
  Company Number: 001472

PATIENT
  Age: 63 Year
  Sex: Male

DRUGS (3)
  1. BUSULFEX [Suspect]
     Indication: STEM CELL TRANSPLANT
  2. FLUDARABINE PHOSPHATE [Suspect]
     Dates: start: 20070628, end: 20070703
  3. VALPROATE SODIUM [Suspect]
     Dates: start: 20070628, end: 20070730

REACTIONS (17)
  - BACTERIAL SEPSIS [None]
  - BIFIDOBACTERIUM INFECTION [None]
  - BRONCHOPULMONARY ASPERGILLOSIS [None]
  - CANDIDA SEPSIS [None]
  - CLOSTRIDIUM DIFFICILE COLITIS [None]
  - CYTOMEGALOVIRUS VIRAEMIA [None]
  - FUNGAL SEPSIS [None]
  - GRAFT VERSUS HOST DISEASE [None]
  - HYPERBILIRUBINAEMIA [None]
  - HYPERTENSION [None]
  - HYPOALBUMINAEMIA [None]
  - PNEUMONIA [None]
  - RASH [None]
  - STAPHYLOCOCCAL SEPSIS [None]
  - STOMATITIS [None]
  - TRICHOSPORON INFECTION [None]
  - VIRAL HAEMORRHAGIC CYSTITIS [None]
